FAERS Safety Report 7587235-4 (Version None)
Quarter: 2011Q3

REPORT INFORMATION
  Report Type: 
  Country: None (occurrence: None)
  Receive Date: 20110701
  Receipt Date: 20110628
  Transmission Date: 20111222
  Serious: Yes (Death, Life-Threatening)
  Sender: FDA-Public Use
  Company Number: US-ROCHE-783345

PATIENT
  Sex: Female

DRUGS (4)
  1. BEVACIZUMAB [Suspect]
     Dosage: 30-90 MIN ON DAY 1 FOR CYCLES 1-6 (STARTING WITH CYCLE 2 FOR THOSE PTS ENETRING POST SURGERY)
     Route: 042
     Dates: start: 20100916
  2. BEVACIZUMAB [Suspect]
     Dosage: OVER 30-90 MIN ON DAY 1, MAINTENANCE THERAPY (CYCLE: 7+) LAST DOSE PRIOR TO SAE: 30 DEC 2010
     Route: 042
  3. CARBOPLATIN [Suspect]
     Dosage: AUC: 6, OVER 30 MIN ON DAY 1 FOR CYCLES 1-6. LAST DOSE PRIOR TO SAE: 30 DEC 2010
     Route: 042
     Dates: start: 20100916
  4. TAXOL [Suspect]
     Dosage: OVER 3 HRS ON DAY 1 FOR CYCLES 1-6 LAST DOSE PRIOR TO SAE: 30 DEC 2010
     Route: 042
     Dates: start: 20100916

REACTIONS (2)
  - PULMONARY EMBOLISM [None]
  - LABORATORY TEST ABNORMAL [None]
